FAERS Safety Report 5352283-1 (Version None)
Quarter: 2007Q2

REPORT INFORMATION
  Report Type: 
  Country: None (occurrence: None)
  Receive Date: 20070611
  Receipt Date: 20070607
  Transmission Date: 20071010
  Serious: Yes (Life-Threatening)
  Sender: FDA-Public Use
  Company Number: PHBS2007JP09487

PATIENT
  Age: 87 Year
  Sex: Female

DRUGS (5)
  1. NORVASC [Suspect]
     Dosage: 2.5 MG/DAY
     Route: 048
  2. AMARYL [Suspect]
     Dosage: 1 MG/DAY
     Route: 048
  3. ASPIRIN [Suspect]
     Dosage: 100 MG/DAY
     Route: 048
  4. URSO 250 [Concomitant]
     Dosage: 600 MG, UNK
     Route: 048
     Dates: start: 20070601
  5. DIOVAN [Suspect]
     Indication: HYPERTENSION
     Dosage: 40 MG/DAY
     Route: 048
     Dates: end: 20070523

REACTIONS (7)
  - ALANINE AMINOTRANSFERASE INCREASED [None]
  - ASPARTATE AMINOTRANSFERASE INCREASED [None]
  - BLOOD BILIRUBIN INCREASED [None]
  - HEPATIC ENCEPHALOPATHY [None]
  - HEPATIC FAILURE [None]
  - JAUNDICE [None]
  - TREMOR [None]
